FAERS Safety Report 16787581 (Version 1)
Quarter: 2019Q3

REPORT INFORMATION
  Report Type: Spontaneous
  Country: US (occurrence: US)
  Receive Date: 20190909
  Receipt Date: 20190909
  Transmission Date: 20191005
  Serious: Yes (Hospitalization, Other)
  Sender: FDA-Public Use
  Company Number: US-INDIVIOR EUROPE LIMITED-INDV-121428-2019

PATIENT
  Age: 64 Year
  Sex: Male

DRUGS (1)
  1. BUPRENORPHINE/NALOXONE [Suspect]
     Active Substance: BUPRENORPHINE\NALOXONE
     Indication: DRUG USE DISORDER
     Dosage: UNK
     Route: 065

REACTIONS (7)
  - Pain in extremity [Unknown]
  - Acute kidney injury [Unknown]
  - Decubitus ulcer [Unknown]
  - Rhabdomyolysis [Unknown]
  - Drug dependence [Unknown]
  - Pneumonia [Unknown]
  - Drug withdrawal syndrome [Unknown]
